FAERS Safety Report 4405918-1 (Version None)
Quarter: 2004Q3

REPORT INFORMATION
  Report Type: 
  Country: None (occurrence: None)
  Receive Date: 20040723
  Receipt Date: 20040202
  Transmission Date: 20050211
  Serious: No
  Sender: FDA-Public Use
  Company Number: US-GLAXOSMITHKLINE-A0496797A

PATIENT
  Age: 63 Year
  Sex: Female

DRUGS (8)
  1. AVANDIA [Suspect]
     Dosage: 2MG PER DAY
     Route: 048
     Dates: start: 20040205
  2. CAPTOPRIL [Concomitant]
  3. PREMARIN [Concomitant]
  4. TRIAMTERENE [Concomitant]
  5. VIT E [Concomitant]
  6. STUDY MEDICATION [Concomitant]
  7. MS CONTIN [Concomitant]
  8. MIACALCIN [Concomitant]

REACTIONS (1)
  - TINNITUS [None]
